FAERS Safety Report 10027323 (Version 1)
Quarter: 2014Q1

REPORT INFORMATION
  Report Type: Report from Study
  Country: ID (occurrence: ID)
  Receive Date: 20140321
  Receipt Date: 20140321
  Transmission Date: 20141002
  Serious: Yes (Other)
  Sender: FDA-Public Use
  Company Number: ID-ASTELLAS-2014US002780

PATIENT
  Age: 63 Year
  Sex: Male

DRUGS (1)
  1. ERLOTINIB TABLET [Suspect]
     Indication: PRODUCT USED FOR UNKNOWN INDICATION
     Dosage: UNK MG, UNKNOWN/D
     Route: 065

REACTIONS (2)
  - Haemoglobin decreased [Recovering/Resolving]
  - Oedema peripheral [Unknown]
